FAERS Safety Report 4713628-6 (Version None)
Quarter: 2005Q3

REPORT INFORMATION
  Report Type: 
  Country: None (occurrence: None)
  Receive Date: 20050712
  Receipt Date: 20050622
  Transmission Date: 20060218
  Serious: Yes (Other)
  Sender: FDA-Public Use
  Company Number: US_0506119630

PATIENT
  Sex: Female

DRUGS (2)
  1. EVISTA [Suspect]
     Dates: start: 20010701
  2. FOSAMAX [Concomitant]

REACTIONS (2)
  - ABDOMINAL DISCOMFORT [None]
  - LYMPHOMA [None]
